FAERS Safety Report 10660649 (Version 1)
Quarter: 2014Q4

REPORT INFORMATION
  Report Type: Spontaneous
  Country: US (occurrence: US)
  Receive Date: 20141217
  Receipt Date: 20141217
  Transmission Date: 20150529
  Serious: No
  Sender: FDA-Public Use
  Company Number: US-GLAXOSMITHKLINE-A1088898A

PATIENT

DRUGS (12)
  1. ONDANSETRON [Concomitant]
     Active Substance: ONDANSETRON
  2. METOPROLOL [Concomitant]
     Active Substance: METOPROLOL
  3. LOVASTATIN. [Concomitant]
     Active Substance: LOVASTATIN
  4. LOSARTAN POTASSIUM. [Concomitant]
     Active Substance: LOSARTAN POTASSIUM
  5. CALCIUM + VITAMIN D [Concomitant]
     Active Substance: CALCIUM\VITAMIN D
  6. AMLODIPINE [Concomitant]
     Active Substance: AMLODIPINE BESYLATE
  7. TERAZOSIN [Concomitant]
     Active Substance: TERAZOSIN\TERAZOSIN HYDROCHLORIDE
  8. FOLIC ACID. [Concomitant]
     Active Substance: FOLIC ACID
  9. CLOBETASOL [Concomitant]
     Active Substance: CLOBETASOL
  10. VOTRIENT [Suspect]
     Active Substance: PAZOPANIB HYDROCHLORIDE
     Indication: RENAL CANCER
     Dosage: 800 MG
     Route: 048
     Dates: start: 20140809
  11. PROCHLORPERAZINE. [Concomitant]
     Active Substance: PROCHLORPERAZINE
  12. LORAZEPAM. [Concomitant]
     Active Substance: LORAZEPAM

REACTIONS (4)
  - Abdominal discomfort [Unknown]
  - Fatigue [Unknown]
  - Diarrhoea [Unknown]
  - Blister [Unknown]
